FAERS Safety Report 12582763 (Version 2)
Quarter: 2016Q3

REPORT INFORMATION
  Report Type: Spontaneous
  Country: CA (occurrence: CA)
  Receive Date: 20160722
  Receipt Date: 20160727
  Transmission Date: 20161109
  Serious: No
  Sender: FDA-Public Use
  Company Number: CA-009507513-1309CAN006159

PATIENT
  Age: 8 Year
  Sex: Male

DRUGS (1)
  1. SINGULAIR [Suspect]
     Active Substance: MONTELUKAST SODIUM
     Dosage: 1 DF, UNK
     Route: 065

REACTIONS (3)
  - Eye swelling [Unknown]
  - Rash [Unknown]
  - Swelling face [Unknown]
